FAERS Safety Report 12165777 (Version 1)
Quarter: 2016Q1

REPORT INFORMATION
  Report Type: Spontaneous
  Country: US (occurrence: US)
  Receive Date: 20160309
  Receipt Date: 20160309
  Transmission Date: 20160526
  Serious: Yes (Other)
  Sender: FDA-Public Use
  Company Number: US-JNJFOC-20160303654

PATIENT
  Age: 23 Year
  Sex: Male

DRUGS (8)
  1. TOPIRAMATE. [Suspect]
     Active Substance: TOPIRAMATE
     Indication: WEIGHT DECREASED
     Route: 048
  2. TOPIRAMATE. [Suspect]
     Active Substance: TOPIRAMATE
     Indication: WEIGHT DECREASED
     Dosage: FOR ONE WEEK
     Route: 048
  3. CLOZAPINE. [Suspect]
     Active Substance: CLOZAPINE
     Indication: SCHIZOPHRENIA
     Route: 065
  4. CLOZAPINE. [Suspect]
     Active Substance: CLOZAPINE
     Indication: SCHIZOPHRENIA
     Route: 065
  5. CLOZAPINE. [Suspect]
     Active Substance: CLOZAPINE
     Indication: SCHIZOPHRENIA
     Route: 065
  6. TOPIRAMATE. [Suspect]
     Active Substance: TOPIRAMATE
     Indication: WEIGHT DECREASED
     Dosage: FOR THE FOLLOWING TWO WEEKS
     Route: 048
  7. TOPIRAMATE. [Suspect]
     Active Substance: TOPIRAMATE
     Indication: WEIGHT DECREASED
     Route: 048
  8. CLOZAPINE. [Suspect]
     Active Substance: CLOZAPINE
     Indication: SCHIZOPHRENIA
     Dosage: FOR ONE WEEK
     Route: 065

REACTIONS (5)
  - Neutropenia [Recovered/Resolved]
  - Weight increased [Unknown]
  - White blood cell count decreased [Recovered/Resolved]
  - Off label use [Unknown]
  - Product use issue [Unknown]
